FAERS Safety Report 5263496-1 (Version None)
Quarter: 2007Q1

REPORT INFORMATION
  Report Type: 
  Country: None (occurrence: None)
  Receive Date: 20061213
  Receipt Date: 20041115
  Transmission Date: 20070707
  Serious: Yes (Other)
  Sender: FDA-Public Use
  Company Number: 2004UW21111

PATIENT
  Age: 66 Year
  Sex: Female
  Weight: 62.142 kg

DRUGS (6)
  1. IRESSA [Suspect]
     Indication: LUNG NEOPLASM MALIGNANT
     Dates: start: 20040801, end: 20041001
  2. IRESSA [Suspect]
     Indication: LUNG NEOPLASM MALIGNANT
     Dates: start: 20041101
  3. CALCIUM [Concomitant]
  4. DECADRON [Concomitant]
  5. VITAMIN CAP [Concomitant]
  6. SHARK CARTILAGE [Concomitant]

REACTIONS (3)
  - ALANINE AMINOTRANSFERASE INCREASED [None]
  - ASPARTATE AMINOTRANSFERASE INCREASED [None]
  - BLOOD ALKALINE PHOSPHATASE INCREASED [None]
